FAERS Safety Report 12535346 (Version 1)
Quarter: 2016Q3

REPORT INFORMATION
  Report Type: Spontaneous
  Country: US (occurrence: US)
  Receive Date: 20160707
  Receipt Date: 20160707
  Transmission Date: 20161109
  Serious: Yes (Other)
  Sender: FDA-Public Use
  Company Number: US-CIPLA LTD.-2012US00529

PATIENT

DRUGS (2)
  1. SORAFENIB [Suspect]
     Active Substance: SORAFENIB
     Indication: PANCREATIC CARCINOMA METASTATIC
     Dosage: 200 MG, TWO TABLETS TWICE DAILY CONTINOUSLY
     Route: 048
  2. GEMCITABINE [Suspect]
     Active Substance: GEMCITABINE\GEMCITABINE HYDROCHLORIDE
     Indication: PANCREATIC CARCINOMA METASTATIC
     Dosage: 1000 MG/M2, AT A RATE OF 10 MG/M2/MIN WEEKLY FOR 3 OUT OF 4 WEEKS
     Route: 042

REACTIONS (1)
  - Thrombotic microangiopathy [Unknown]
